FAERS Safety Report 25076356 (Version 3)
Quarter: 2025Q2

REPORT INFORMATION
  Report Type: Spontaneous
  Country: PL (occurrence: PL)
  Receive Date: 20250313
  Receipt Date: 20250408
  Transmission Date: 20250717
  Serious: Yes (Hospitalization, Disabling, Other)
  Sender: COSETTE PHARMACEUTICALS
  Company Number: None

PATIENT
  Age: 83 Year
  Sex: Female
  Weight: 91 kg

DRUGS (27)
  1. AMBIEN [Suspect]
     Active Substance: ZOLPIDEM TARTRATE
     Indication: Depression
     Route: 065
  2. METOCLOPRAMIDE HYDROCHLORIDE [Suspect]
     Active Substance: METOCLOPRAMIDE HYDROCHLORIDE
     Indication: Constipation
     Route: 065
  3. HYDROXYZINE [Suspect]
     Active Substance: HYDROXYZINE HYDROCHLORIDE
     Indication: Product used for unknown indication
     Dosage: 25 MG AS NECESSARY, 2X/24 H ON AVERAGE
     Route: 065
  4. ALPRAZOLAM [Suspect]
     Active Substance: ALPRAZOLAM
     Indication: Depression
     Route: 065
  5. GLICLAZIDE [Suspect]
     Active Substance: GLICLAZIDE
     Indication: Type 2 diabetes mellitus
     Route: 065
  6. HYDROCHLOROTHIAZIDE [Suspect]
     Active Substance: HYDROCHLOROTHIAZIDE
     Indication: Product used for unknown indication
     Route: 065
  7. ALLOPURINOL [Concomitant]
     Active Substance: ALLOPURINOL
     Indication: Product used for unknown indication
     Route: 048
  8. ALLOPURINOL [Concomitant]
     Active Substance: ALLOPURINOL
     Route: 048
  9. ALLOPURINOL [Concomitant]
     Active Substance: ALLOPURINOL
     Indication: Product used for unknown indication
     Route: 065
  10. VOREDANIN [Concomitant]
     Indication: Product used for unknown indication
     Route: 065
  11. CITALOPRAM [Concomitant]
     Active Substance: CITALOPRAM
     Indication: Depression
     Route: 065
  12. DABIGATRAN [Concomitant]
     Active Substance: DABIGATRAN
     Indication: Product used for unknown indication
     Dosage: 110 MG, QD 1-0-1
  13. DABIGATRAN [Concomitant]
     Active Substance: DABIGATRAN
     Route: 065
  14. FUROSEMIDE [Concomitant]
     Active Substance: FUROSEMIDE
     Indication: Product used for unknown indication
     Route: 065
  15. HYDROCHLOROTHIAZIDE [Concomitant]
     Active Substance: HYDROCHLOROTHIAZIDE
     Indication: Product used for unknown indication
     Route: 065
  16. ISOSORBIDE MONONITRATE [Concomitant]
     Active Substance: ISOSORBIDE MONONITRATE
     Indication: Product used for unknown indication
     Dosage: AS NECESSARY, 1-2X/24 H ON AVERAGE
     Route: 065
  17. LEVOTHYROXINE [Concomitant]
     Active Substance: LEVOTHYROXINE
     Indication: Product used for unknown indication
     Route: 065
  18. MEPOLOL [Concomitant]
     Indication: Product used for unknown indication
     Dosage: 1-0-1
     Route: 065
  19. OMEPRAZOLE [Concomitant]
     Active Substance: OMEPRAZOLE
     Indication: Product used for unknown indication
     Route: 065
  20. ACENOL [PARACETAMOL] [Concomitant]
     Indication: Product used for unknown indication
     Route: 065
  21. POTASSIUM CHLORIDE [Concomitant]
     Active Substance: POTASSIUM CHLORIDE
     Indication: Product used for unknown indication
     Dosage: 391 MG, QOD 1 TABLET EVERY SECOND DAY
     Route: 065
  22. RAMIPRIL [Concomitant]
     Active Substance: RAMIPRIL
     Indication: Product used for unknown indication
     Route: 065
  23. ALBUTEROL [Concomitant]
     Active Substance: ALBUTEROL
     Indication: Product used for unknown indication
     Route: 065
  24. SPIRONOLACTONE [Concomitant]
     Active Substance: SPIRONOLACTONE
     Indication: Product used for unknown indication
     Route: 065
  25. TORSEMIDE [Concomitant]
     Active Substance: TORSEMIDE
     Indication: Product used for unknown indication
     Route: 048
  26. PIRALGIN [METAMIZOLE SODIUM] [Concomitant]
     Indication: Product used for unknown indication
     Dosage: QD 2 TABLETS AS NECESSARY, IF NEEDED
     Route: 065
  27. GLUCARDIAMID [Concomitant]
     Indication: Product used for unknown indication
     Route: 065

REACTIONS (14)
  - Orthostatic hypotension [Unknown]
  - Fall [Recovering/Resolving]
  - Osteoporosis [Unknown]
  - Motor dysfunction [Recovering/Resolving]
  - Hypotonia [Recovering/Resolving]
  - Sedation complication [Recovering/Resolving]
  - Mobility decreased [Recovering/Resolving]
  - Muscle rigidity [Unknown]
  - Bradykinesia [Unknown]
  - Parkinsonism [Unknown]
  - Dementia [Unknown]
  - Urinary retention [Unknown]
  - Hypoglycaemia [Recovered/Resolved]
  - Dizziness [Unknown]
